FAERS Safety Report 9617330 (Version 1)
Quarter: 2013Q4

REPORT INFORMATION
  Report Type: Spontaneous
  Country: US (occurrence: US)
  Receive Date: 20131011
  Receipt Date: 20131011
  Transmission Date: 20140711
  Serious: Yes (Hospitalization)
  Sender: FDA-Public Use
  Company Number: US-BRISTOL-MYERS SQUIBB COMPANY-19493105

PATIENT
  Age: 85 Year
  Sex: Female
  Weight: 76.9 kg

DRUGS (2)
  1. ELIQUIS [Suspect]
  2. LOPRESSOR [Concomitant]

REACTIONS (1)
  - Atrial fibrillation [Unknown]
